FAERS Safety Report 6195325-6 (Version None)
Quarter: 2009Q2

REPORT INFORMATION
  Report Type: 
  Country: None (occurrence: None)
  Receive Date: 20090519
  Receipt Date: 20090514
  Transmission Date: 20091009
  Serious: Yes (Other)
  Sender: FDA-Public Use
  Company Number: DE-PFIZER INC-2009161751

PATIENT
  Age: 46 Year

DRUGS (1)
  1. SERTRALINE HCL [Suspect]
     Indication: DEPRESSION
     Dosage: 50 MG, 1X/DAY
     Route: 048
     Dates: start: 20090109, end: 20090113

REACTIONS (6)
  - HYPERREFLEXIA [None]
  - HYPERTENSION [None]
  - MYALGIA [None]
  - NAUSEA [None]
  - PALPITATIONS [None]
  - TREMOR [None]
